FAERS Safety Report 9380364 (Version 1)
Quarter: 2013Q3

REPORT INFORMATION
  Report Type: Spontaneous
  Country: IE (occurrence: IE)
  Receive Date: 20130702
  Receipt Date: 20130702
  Transmission Date: 20140515
  Serious: Yes (Other)
  Sender: FDA-Public Use
  Company Number: IE-TEVA-357220ISR

PATIENT
  Age: 50 Year
  Sex: Female

DRUGS (23)
  1. TEVAGRASTIM [Suspect]
     Route: 058
     Dates: start: 20120827, end: 20120829
  2. CIPROFLOXACIN [Concomitant]
     Dosage: 800 MILLIGRAM DAILY; UNIT DOSE ADMINISTERED DAILY AT 0600HRS + 1800HRS
     Route: 041
     Dates: start: 20120824, end: 20120825
  3. CIPROFLOXACIN [Concomitant]
     Dosage: 1000 MILLIGRAM DAILY; UNIT DOSE ADMINISTERED DAILY AT 0800HRS AND 2200HRS
     Route: 048
     Dates: start: 20120824
  4. FLUCLOXACILLIN [Concomitant]
     Indication: CELLULITIS
     Dosage: 2000 MILLIGRAM DAILY; UNIT DOSE ADMINISTERED DAILY AT 0800HRS, 1400HRS, 1800HRS + 2200HRS
     Route: 048
     Dates: start: 20120826, end: 20120828
  5. TAZOCIN [Concomitant]
     Indication: FEBRILE NEUTROPENIA
     Dosage: 18 GRAM DAILY; UNIT DOSE ADMINISTERED DAILY AT 0600HRS, 1200HRS, 1800HRS + 2200HRS
     Route: 041
     Dates: start: 20120826, end: 20120827
  6. CALCICHEW D3 FORTE [Concomitant]
     Dosage: 2 TABLET DAILY; ADMINISTERED DAILY AT 0800HRS AND 2200HRS.  TREATMENT STARTED PRE-ADMISSION
     Route: 048
     Dates: start: 20120824
  7. FLUCONAZOLE [Concomitant]
     Dosage: 50 MILLIGRAM DAILY; ADMINISTERED DAILY AT 0800HRS.  TREATMENT STARTED PRE-ADMISSION.
     Route: 048
     Dates: start: 20120824
  8. ALLOPURINOL [Concomitant]
     Dosage: 300 MILLIGRAM DAILY; ADMINISTERED DAILY AT 0800HRS.  TREATMENT STARTED PRE-ADMISSION.
     Route: 048
     Dates: start: 20120824
  9. MYCOSTATIN [Concomitant]
     Dates: start: 20120824, end: 20120825
  10. FRUSEMIDE [Concomitant]
     Dosage: 20 MILLIGRAM DAILY; ADMINISTERED DAILY AT 1300HRS
     Route: 048
     Dates: start: 20120825
  11. SENNA [Concomitant]
     Dosage: ADMINISTERED DAILY AT 2200HRS
     Route: 048
     Dates: start: 20120826, end: 20120830
  12. SENNA [Concomitant]
     Dosage: 2 TABLETS NOCTE WHEN REQUIRED
     Route: 048
     Dates: start: 20120831
  13. LACTULOSE [Concomitant]
     Dosage: 30 ML DAILY; ADMINISTERED DAILY AT 0800HRS, 1300HRS + 2200HRS
     Route: 048
     Dates: start: 20120826, end: 20120831
  14. LACTULOSE [Concomitant]
     Dosage: 10ML (3 IN 1 DAY AS REQUIRED)
     Route: 048
     Dates: start: 20120831
  15. CHLORPHENAMINE [Concomitant]
     Dosage: 12 MILLIGRAM DAILY; ADMINISTERED DAILY AT 0800HRS, 1700HRS + 2200HRS
     Route: 048
     Dates: start: 20120828, end: 20120829
  16. NEORECORMON [Concomitant]
     Dosage: 30000  DAILY; ADMINISTERED WEEKLY (WEDNESDAY).  TREATMENT STARTED PRE-ADMISSION.
     Route: 058
     Dates: start: 20120829
  17. FLAMAZINE [Concomitant]
     Indication: SKIN ULCER
     Dosage: APPLIED TOPICALLY AT 1700HRS DAILY TO ULCERS ON LEFT FOOT
     Route: 061
     Dates: start: 20120829
  18. BETNOVATE RD [Concomitant]
     Dosage: 2  DAILY; APPLICED TOPICALLY TO ARMS/TORSO DAILY AT 0800HRS AND 2200HRS
     Route: 061
     Dates: start: 20120829
  19. MOTILIUM [Concomitant]
     Dosage: 10MG (3 IN 1 DAY AS REQUIRED)
     Route: 048
     Dates: start: 20120824
  20. TRAMADOL [Concomitant]
     Dosage: 50MG (3 IN 1 DAY AS REQUIRED)
     Route: 048
     Dates: start: 20120825
  21. BISOPROLOL [Concomitant]
     Dosage: 5 MILLIGRAM DAILY; ADMINISTERED DAILY AT 0800HRS
     Route: 048
     Dates: start: 20120824
  22. VALTREX [Concomitant]
     Route: 048
     Dates: start: 20120824
  23. GLUCOSAMINE [Concomitant]
     Route: 048
     Dates: start: 20120824

REACTIONS (3)
  - Rash [Unknown]
  - Platelet count decreased [Unknown]
  - Pain in extremity [Unknown]
